FAERS Safety Report 8601259-7 (Version None)
Quarter: 2012Q3

REPORT INFORMATION
  Report Type: 
  Country: None (occurrence: None)
  Receive Date: 20120817
  Receipt Date: 20120814
  Transmission Date: 20120928
  Serious: Yes (Other)
  Sender: FDA-Public Use
  Company Number: PHHY2012SE070173

PATIENT
  Age: 32 Year
  Sex: Female

DRUGS (7)
  1. TEMOZOLOMIDE [Concomitant]
     Dosage: 250 MG, QD
  2. SANDOSTATIN LAR [Suspect]
     Indication: NEUROENDOCRINE CARCINOMA
     Dosage: 30 MG, EVERY 4 WEEKS
  3. ETOPOSIDE [Suspect]
  4. CISPLATIN [Suspect]
  5. BEVACIZUMAB [Concomitant]
     Dosage: 300 MG, UNK
  6. OCTREOTIDE ACETATE [Suspect]
     Indication: NEUROENDOCRINE CARCINOMA
     Dosage: 100 UG, TID
     Route: 058
  7. CAPECITABINE [Suspect]
     Dosage: 1000 MG, BID

REACTIONS (2)
  - CHEST PAIN [None]
  - NEOPLASM MALIGNANT [None]
